FAERS Safety Report 9645795 (Version 8)
Quarter: 2014Q1

REPORT INFORMATION
  Report Type: Report from Study
  Country: US (occurrence: US)
  Receive Date: 20131025
  Receipt Date: 20140309
  Transmission Date: 20141002
  Serious: Yes (Life-Threatening, Hospitalization, Other)
  Sender: FDA-Public Use
  Company Number: US-CELGENEUS-163-21880-13102860

PATIENT
  Age: 75 Year
  Sex: Male
  Weight: 96.7 kg

DRUGS (43)
  1. REVLIMID [Suspect]
     Indication: PLASMA CELL MYELOMA
     Dosage: 25 MILLIGRAM
     Route: 048
     Dates: start: 20111215, end: 20120425
  2. REVLIMID [Suspect]
     Dosage: 25 MILLIGRAM
     Route: 048
     Dates: start: 20120503, end: 20120718
  3. REVLIMID [Suspect]
     Dosage: 25 MILLIGRAM
     Route: 048
     Dates: start: 20120726, end: 20121219
  4. REVLIMID [Suspect]
     Dosage: 10 MILLIGRAM
     Route: 048
     Dates: start: 20130128, end: 20130210
  5. REVLIMID [Suspect]
     Dosage: 5 MILLIGRAM
     Route: 048
     Dates: start: 20130404, end: 20130911
  6. REVLIMID [Suspect]
     Dosage: 5 MILLIGRAM
     Route: 048
     Dates: start: 20130926, end: 20131009
  7. DEXAMETHASONE [Suspect]
     Indication: PLASMA CELL MYELOMA
     Route: 065
     Dates: start: 200612, end: 200706
  8. DEXAMETHASONE [Suspect]
     Route: 065
     Dates: start: 20070702, end: 200707
  9. DEXAMETHASONE [Suspect]
     Dosage: 40 MILLIGRAM
     Route: 065
     Dates: start: 20111215
  10. DEXAMETHASONE [Suspect]
     Route: 065
     Dates: start: 20130926, end: 20131010
  11. CARFILZOMIB [Suspect]
     Indication: PLASMA CELL MYELOMA
     Route: 065
  12. PROVENTIL [Concomitant]
     Indication: PROPHYLAXIS
     Dosage: 2.5 MILLIGRAM
     Route: 055
     Dates: start: 20131016, end: 20131016
  13. ROCEPHIN [Concomitant]
     Indication: INFECTION PROPHYLAXIS
     Dosage: 1 GRAM
     Route: 041
     Dates: start: 20131013, end: 20131013
  14. ZITHROMAX [Concomitant]
     Indication: INFECTION PROPHYLAXIS
     Dosage: 500 MILLIGRAM
     Route: 041
     Dates: start: 20131013, end: 20131014
  15. ZOLPIDEM [Concomitant]
     Indication: PRODUCT USED FOR UNKNOWN INDICATION
     Route: 065
  16. DOCUSATE [Concomitant]
     Indication: PRODUCT USED FOR UNKNOWN INDICATION
     Route: 065
  17. BUPROPION [Concomitant]
     Indication: ATTENTION DEFICIT/HYPERACTIVITY DISORDER
     Dosage: 300 MILLIGRAM
     Route: 048
     Dates: start: 200801
  18. CIPRO [Concomitant]
     Indication: ANTIBIOTIC PROPHYLAXIS
     Dosage: 500 MILLIGRAM
     Route: 048
     Dates: start: 20111214
  19. CLOMIPRAMINE [Concomitant]
     Indication: OBSESSIVE-COMPULSIVE DISORDER
     Dosage: 100 MILLIGRAM
     Route: 048
     Dates: start: 200906
  20. COUMADIN [Concomitant]
     Indication: ANTICOAGULANT THERAPY
     Dosage: 7.5 MILLIGRAM
     Route: 048
     Dates: start: 200607
  21. COUMADIN [Concomitant]
     Indication: ANTIPLATELET THERAPY
     Route: 065
  22. FLUVOXAMINE [Concomitant]
     Indication: OBSESSIVE-COMPULSIVE DISORDER
     Dosage: 100 MILLIGRAM
     Route: 048
     Dates: start: 200906
  23. IMODIUM [Concomitant]
     Indication: DIARRHOEA
     Route: 048
     Dates: start: 20120322
  24. LACTAID [Concomitant]
     Indication: LACTOSE INTOLERANCE
     Route: 048
     Dates: start: 20121025
  25. LEVOTHYROXINE [Concomitant]
     Indication: HYPOTHYROIDISM
     Dosage: 112.5 MICROGRAM
     Route: 048
     Dates: start: 20130313
  26. LEVOTHYROXINE [Concomitant]
     Dosage: 125 MICROGRAM
     Route: 048
     Dates: start: 20130516, end: 20130918
  27. LEVOTHYROXINE [Concomitant]
     Dosage: 137 MICROGRAM
     Route: 048
     Dates: start: 20130913
  28. METHYLPHENIDATE [Concomitant]
     Indication: ATTENTION DEFICIT/HYPERACTIVITY DISORDER
     Dosage: 40 MILLIGRAM
     Route: 048
     Dates: start: 200806
  29. METOPROLOL [Concomitant]
     Indication: HYPERTENSION
     Dosage: 25 MILLIGRAM
     Route: 048
     Dates: start: 200401
  30. PEPTO BISMOL [Concomitant]
     Indication: DIARRHOEA
     Route: 048
     Dates: start: 20120923
  31. PREVACID [Concomitant]
     Indication: GASTRIC DISORDER
     Dosage: 15 MILLIGRAM
     Route: 048
     Dates: start: 20111214
  32. TYLENOL [Concomitant]
     Indication: BACK PAIN
     Route: 048
     Dates: start: 20120209
  33. VALTREX [Concomitant]
     Indication: ANTIVIRAL PROPHYLAXIS
     Dosage: 500 MILLIGRAM
     Route: 048
     Dates: start: 20111214
  34. VITAMIN B [Concomitant]
     Indication: SUPPLEMENTATION THERAPY
     Dosage: 1 TABLET
     Route: 048
  35. VITAMIN D [Concomitant]
     Indication: VITAMIN SUPPLEMENTATION
     Dosage: 2000 IU (INTERNATIONAL UNIT)
     Route: 048
     Dates: start: 200804
  36. WARFARIN [Concomitant]
     Indication: THROMBOSIS PROPHYLAXIS
     Route: 048
     Dates: start: 200607
  37. ZOFRAN [Concomitant]
     Indication: NAUSEA
     Route: 041
     Dates: start: 20131013, end: 20131109
  38. ZOFRAN [Concomitant]
     Indication: PROPHYLAXIS OF NAUSEA AND VOMITING
     Route: 065
  39. VITAMIN K [Concomitant]
     Indication: PROPHYLAXIS
     Dosage: 2.5 MILLIGRAM
     Route: 041
     Dates: start: 20131014, end: 20131014
  40. POTASSIUM CHLORIDE [Concomitant]
     Indication: PROPHYLAXIS
     Dosage: 20-40MEQ
     Route: 048
     Dates: start: 20131014, end: 20131014
  41. POTASSIUM CHLORIDE [Concomitant]
     Indication: HYPOKALAEMIA
  42. NEUPOGEN [Concomitant]
     Indication: PROPHYLAXIS
     Dosage: 480 MICROGRAM
     Route: 058
     Dates: start: 20131113, end: 20131129
  43. NEUPOGEN [Concomitant]
     Indication: NEUTROPENIA

REACTIONS (3)
  - Acute myeloid leukaemia [Not Recovered/Not Resolved]
  - Pyrexia [Unknown]
  - Neck pain [Recovered/Resolved]
